FAERS Safety Report 8804664 (Version 2)
Quarter: 2012Q4

REPORT INFORMATION
  Report Type: 
  Country: US (occurrence: US)
  Receive Date: 20120922
  Receipt Date: 20121019
  Transmission Date: 20130627
  Serious: No
  Sender: FDA-Public Use
  Company Number: US-TEVA-357646USA

PATIENT
  Age: 78 Year
  Sex: Female
  Weight: 68.1 kg

DRUGS (5)
  1. PROAIR HFA [Suspect]
     Indication: CHRONIC OBSTRUCTIVE PULMONARY DISEASE
     Dosage: varies every 3-4 hrs as needed
     Route: 055
     Dates: start: 20120726
  2. ESTRADIOL [Concomitant]
     Indication: HORMONE THERAPY
     Dosage: daily
     Route: 048
  3. METOPROLOL [Concomitant]
     Indication: HYPERTENSION
     Dosage: daily
     Route: 048
  4. LEVOTHYROXINE [Concomitant]
     Indication: HORMONE THERAPY
     Dosage: daily
     Route: 048
  5. ALPRAZOLAM [Concomitant]
     Indication: ANXIETY
     Dosage: as needed
     Route: 048

REACTIONS (1)
  - Drug ineffective [Not Recovered/Not Resolved]
